FAERS Safety Report 20156750 (Version 1)
Quarter: 2021Q4

REPORT INFORMATION
  Report Type: Spontaneous
  Country: CN (occurrence: CN)
  Receive Date: 20211207
  Receipt Date: 20211207
  Transmission Date: 20220303
  Serious: Yes (Disabling, Other)
  Sender: FDA-Public Use
  Company Number: CN-PFIZER INC-202101655636

PATIENT
  Age: 32 Year
  Sex: Male
  Weight: 62 kg

DRUGS (4)
  1. DALTEPARIN SODIUM [Suspect]
     Active Substance: DALTEPARIN SODIUM
     Indication: Cerebral venous sinus thrombosis
     Dosage: 5000 IU, 2X/DAY
     Route: 058
     Dates: start: 20211111, end: 20211121
  2. DALTEPARIN SODIUM [Suspect]
     Active Substance: DALTEPARIN SODIUM
     Indication: Migraine
  3. PANTOPRAZOLE SODIUM [Concomitant]
     Active Substance: PANTOPRAZOLE SODIUM
     Indication: Cerebral venous sinus thrombosis
     Dosage: 40 MG, 1X/DAY
     Route: 041
     Dates: start: 20211111, end: 20211121
  4. PANTOPRAZOLE SODIUM [Concomitant]
     Active Substance: PANTOPRAZOLE SODIUM
     Indication: Migraine

REACTIONS (2)
  - Hepatic enzyme increased [Unknown]
  - Drug-induced liver injury [Unknown]

NARRATIVE: CASE EVENT DATE: 20211101
